FAERS Safety Report 14078788 (Version 3)
Quarter: 2018Q1

REPORT INFORMATION
  Report Type: Spontaneous
  Country: US (occurrence: US)
  Receive Date: 20171012
  Receipt Date: 20180314
  Transmission Date: 20180508
  Serious: No
  Sender: FDA-Public Use
  Company Number: US-PFIZER INC-2017439376

PATIENT
  Age: 44 Year
  Sex: Female
  Weight: 99.79 kg

DRUGS (1)
  1. XELJANZ XR [Suspect]
     Active Substance: TOFACITINIB CITRATE
     Indication: RHEUMATOID ARTHRITIS
     Dosage: 11 MG (1 TABLET), DAILY
     Route: 048
     Dates: start: 20171002

REACTIONS (4)
  - Fibromyalgia [Unknown]
  - Diarrhoea [Unknown]
  - Fatigue [Unknown]
  - Pain [Unknown]

NARRATIVE: CASE EVENT DATE: 2017
